FAERS Safety Report 21457382 (Version 1)
Quarter: 2022Q4

REPORT INFORMATION
  Report Type: Spontaneous
  Country: SK (occurrence: SK)
  Receive Date: 20221014
  Receipt Date: 20221014
  Transmission Date: 20230112
  Serious: Yes (Death, Other)
  Sender: FDA-Public Use
  Company Number: None

PATIENT
  Age: 58 Year
  Sex: Female

DRUGS (1)
  1. CAPECITABINE [Suspect]
     Active Substance: CAPECITABINE
     Indication: Breast cancer

REACTIONS (7)
  - Metastases to liver [Unknown]
  - Hepatorenal failure [Fatal]
  - Therapeutic product effect decreased [Unknown]
  - Metastases to pleura [Unknown]
  - Metastases to bone [Unknown]
  - Disease progression [Unknown]
  - Metastases to lymph nodes [Unknown]
